FAERS Safety Report 23305147 (Version 2)
Quarter: 2024Q1

REPORT INFORMATION
  Report Type: Report from Study
  Country: GR (occurrence: GR)
  Receive Date: 20231218
  Receipt Date: 20240118
  Transmission Date: 20240410
  Serious: Yes (Death, Life-Threatening, Hospitalization)
  Sender: FDA-Public Use
  Company Number: GR-002147023-NVSC2023GR108600

PATIENT
  Age: 8 Month
  Sex: Female
  Weight: 6.3 kg

DRUGS (3)
  1. ZOLGENSMA [Suspect]
     Active Substance: ONASEMNOGENE ABEPARVOVEC-XIOI
     Indication: Spinal muscular atrophy
     Dosage: 35.8 ML, ONCE/SINGLE (7.2 X10E4 VG)
     Route: 042
     Dates: start: 20230314
  2. PREDNISOLONE [Concomitant]
     Active Substance: PREDNISOLONE
     Indication: Spinal muscular atrophy
     Dosage: 6 MG
     Route: 065
     Dates: start: 20230313, end: 20230516
  3. ESOMEPRAZOLE [Concomitant]
     Active Substance: ESOMEPRAZOLE
     Indication: Steroid therapy
     Dosage: 5 MG
     Route: 065
     Dates: start: 20230313

REACTIONS (3)
  - Death [Fatal]
  - Pneumonia aspiration [Recovered/Resolved with Sequelae]
  - Acute respiratory distress syndrome [Recovered/Resolved with Sequelae]

NARRATIVE: CASE EVENT DATE: 20230412
